FAERS Safety Report 23661995 (Version 4)
Quarter: 2025Q2

REPORT INFORMATION
  Report Type: Report from Study
  Country: CO (occurrence: CO)
  Receive Date: 20240322
  Receipt Date: 20250528
  Transmission Date: 20250716
  Serious: Yes (Hospitalization, Other)
  Sender: GLAXOSMITHKLINE
  Company Number: CO-GLAXOSMITHKLINE-CO2024AMR036159

PATIENT

DRUGS (1)
  1. MEPOLIZUMAB [Suspect]
     Active Substance: MEPOLIZUMAB
     Indication: Asthma
     Dosage: 100 MG, MO
     Dates: start: 20231211

REACTIONS (7)
  - Systemic lupus erythematosus [Unknown]
  - Respiratory disorder [Not Recovered/Not Resolved]
  - Infection [Not Recovered/Not Resolved]
  - Ureteral stent insertion [Unknown]
  - Carpal tunnel decompression [Recovering/Resolving]
  - Thrombosis [Not Recovered/Not Resolved]
  - Product use in unapproved indication [Unknown]

NARRATIVE: CASE EVENT DATE: 20240301
